FAERS Safety Report 20945498 (Version 1)
Quarter: 2022Q2

REPORT INFORMATION
  Report Type: Spontaneous
  Country: CN (occurrence: CN)
  Receive Date: 20220610
  Receipt Date: 20220610
  Transmission Date: 20220721
  Serious: Yes (Other)
  Sender: FDA-Public Use
  Company Number: CN-PFIZER INC-202200824582

PATIENT
  Age: 57 Year
  Sex: Male

DRUGS (1)
  1. LIPITOR [Suspect]
     Active Substance: ATORVASTATIN CALCIUM
     Indication: Chest pain
     Dosage: 20 MG, 1X/DAY
     Route: 048
     Dates: start: 20220529, end: 20220601

REACTIONS (2)
  - Drug-induced liver injury [Unknown]
  - Myocardial injury [Unknown]

NARRATIVE: CASE EVENT DATE: 20220601
